FAERS Safety Report 8904014 (Version 1)
Quarter: 2012Q4

REPORT INFORMATION
  Report Type: 
  Country: US (occurrence: US)
  Receive Date: 20121112
  Receipt Date: 20121112
  Transmission Date: 20130627
  Serious: No
  Sender: FDA-Public Use
  Company Number: US-ASTRAZENECA-2012SE82519

PATIENT
  Age: 17 Year
  Sex: Male

DRUGS (6)
  1. SEROQUEL XR [Suspect]
     Indication: DEPRESSION
     Route: 048
     Dates: start: 201209, end: 201210
  2. SEROQUEL XR [Suspect]
     Indication: HALLUCINATION, AUDITORY
     Route: 048
     Dates: start: 201209, end: 201210
  3. SEROQUEL XR [Suspect]
     Indication: DEPRESSION
     Route: 048
     Dates: start: 201210, end: 20121018
  4. SEROQUEL XR [Suspect]
     Indication: HALLUCINATION, AUDITORY
     Route: 048
     Dates: start: 201210, end: 20121018
  5. SEROQUEL XR [Suspect]
     Indication: DEPRESSION
     Route: 048
     Dates: start: 20121018, end: 20121019
  6. SEROQUEL XR [Suspect]
     Indication: HALLUCINATION, AUDITORY
     Route: 048
     Dates: start: 20121018, end: 20121019

REACTIONS (5)
  - Viral infection [Unknown]
  - Insomnia [Unknown]
  - Fatigue [Unknown]
  - Vomiting [Unknown]
  - Intentional drug misuse [Unknown]
